FAERS Safety Report 8308485-5 (Version None)
Quarter: 2012Q2

REPORT INFORMATION
  Report Type: 
  Country: None (occurrence: None)
  Receive Date: 20120419
  Receipt Date: 20120405
  Transmission Date: 20120825
  Serious: Yes (Hospitalization, Other)
  Sender: FDA-Public Use
  Company Number: EU-2012-10029

PATIENT
  Sex: Male
  Weight: 80 kg

DRUGS (13)
  1. METFORMIN HCL [Concomitant]
  2. GLIMEPIRID (GLIMEPIRIDE) [Concomitant]
  3. AMLODIPIN (AMLODIPIN) [Concomitant]
  4. ALLOPURINOL [Concomitant]
  5. RAMIPRIL [Concomitant]
  6. SAMSCA [Suspect]
     Indication: INAPPROPRIATE ANTIDIURETIC HORMONE SECRETION
     Dosage: 15 MG MILLIGRAM(S), DAILY DOSE, ORAL
     Route: 048
     Dates: start: 20120103, end: 20120103
  7. SAMSCA [Suspect]
     Indication: INAPPROPRIATE ANTIDIURETIC HORMONE SECRETION
     Dosage: 15 MG MILLIGRAM(S), DAILY DOSE, ORAL
     Route: 048
     Dates: start: 20120226, end: 20120226
  8. SAMSCA [Suspect]
     Indication: INAPPROPRIATE ANTIDIURETIC HORMONE SECRETION
     Dosage: 15 MG MILLIGRAM(S), DAILY DOSE, ORAL
     Route: 048
     Dates: start: 20120201, end: 20120201
  9. BISOPROLOL (BISOPROLOL HEMIFUMARATE) [Concomitant]
  10. HYDROCHLORTHIAZID (HYDROCHLOROTHIAZIDE) [Concomitant]
  11. TAZOBACTAM [Concomitant]
  12. MOXONIDINE (MOXONIDINE) [Concomitant]
  13. CLARITHROMYCIN [Concomitant]

REACTIONS (7)
  - RAPID CORRECTION OF HYPONATRAEMIA [None]
  - MUCOSAL INFLAMMATION [None]
  - BALANITIS [None]
  - APLASIA [None]
  - UROGENITAL INFECTION BACTERIAL [None]
  - CONFUSIONAL STATE [None]
  - SUBILEUS [None]
